FAERS Safety Report 6355620-4 (Version None)
Quarter: 2009Q3

REPORT INFORMATION
  Report Type: 
  Country: None (occurrence: None)
  Receive Date: 20090914
  Receipt Date: 20090901
  Transmission Date: 20100115
  Serious: Yes (Other)
  Sender: FDA-Public Use
  Company Number: NO-MERCK-0909NOR00009

PATIENT
  Age: 79 Year
  Sex: Female

DRUGS (2)
  1. ALENDRONIC ACID [Suspect]
     Route: 065
  2. PREDNISOLONE [Suspect]
     Route: 065

REACTIONS (2)
  - INFECTION [None]
  - OSTEONECROSIS [None]
